FAERS Safety Report 9569553 (Version 2)
Quarter: 2013Q3

REPORT INFORMATION
  Report Type: Spontaneous
  Country: US (occurrence: US)
  Receive Date: 20130930
  Receipt Date: 20130930
  Transmission Date: 20140515
  Serious: No
  Sender: FDA-Public Use
  Company Number: US-AMGEN-USASP2013066161

PATIENT
  Age: 60 Year
  Sex: Male

DRUGS (10)
  1. ENBREL [Suspect]
     Indication: PSORIASIS
     Dosage: 50 MG, 2 TIMES/WK
     Route: 058
     Dates: start: 201012, end: 20120920
  2. HUMIRA [Concomitant]
     Dosage: UNK
     Route: 058
  3. STELARA [Concomitant]
     Dosage: UNK
     Route: 058
  4. DESONIDE [Concomitant]
     Indication: PSORIASIS
     Dosage: UNK, 0.05%
     Route: 061
  5. TRIAMCINOLONE [Concomitant]
     Indication: PSORIASIS
     Dosage: UNK,0.1%
     Route: 061
  6. HYDRALAZINE [Concomitant]
     Dosage: UNK
     Route: 048
  7. MELOXICAM [Concomitant]
     Dosage: UNK
  8. TRIBENZOR [Concomitant]
     Dosage: UNK
     Route: 048
  9. CLONIDINE [Concomitant]
     Dosage: UNK
     Route: 048
  10. FUROSEMIDE [Concomitant]
     Dosage: UNK
     Route: 048

REACTIONS (2)
  - Therapeutic response decreased [Unknown]
  - Psoriasis [Not Recovered/Not Resolved]
